FAERS Safety Report 15712762 (Version 1)
Quarter: 2018Q4

REPORT INFORMATION
  Report Type: Spontaneous
  Country: AU (occurrence: AU)
  Receive Date: 20181212
  Receipt Date: 20181212
  Transmission Date: 20190205
  Serious: Yes (Other)
  Sender: FDA-Public Use
  Company Number: AU-TEVA-2018-AU-984727

PATIENT
  Age: 36 Year
  Sex: Female

DRUGS (11)
  1. LITHIUM. [Concomitant]
     Active Substance: LITHIUM
  2. CLOZAPINE. [Suspect]
     Active Substance: CLOZAPINE
     Route: 065
  3. ESOMEPRAZOLE. [Concomitant]
     Active Substance: ESOMEPRAZOLE MAGNESIUM
  4. FENOFIBRATE. [Concomitant]
     Active Substance: FENOFIBRATE
  5. QUETIAPINE FUMARATE. [Suspect]
     Active Substance: QUETIAPINE FUMARATE
     Route: 065
  6. CHLORPROMAZINE HYDROCHLORIDE. [Concomitant]
     Active Substance: CHLORPROMAZINE HYDROCHLORIDE
  7. HALOPERIDOL. [Concomitant]
     Active Substance: HALOPERIDOL
  8. XIGDUO XR [Concomitant]
     Active Substance: DAPAGLIFLOZIN PROPANEDIOL\METFORMIN HYDROCHLORIDE
  9. SITAGLIPTIN [Concomitant]
     Active Substance: SITAGLIPTIN
  10. AMISULPRIDE [Concomitant]
     Active Substance: AMISULPRIDE
  11. ARIPIPRAZOLE. [Concomitant]
     Active Substance: ARIPIPRAZOLE

REACTIONS (10)
  - Schizoaffective disorder [Unknown]
  - Flat affect [Unknown]
  - Sleep disorder [Unknown]
  - Drug effect incomplete [Unknown]
  - Condition aggravated [Unknown]
  - Suicide attempt [Unknown]
  - Sexually inappropriate behaviour [Unknown]
  - Toxicity to various agents [Unknown]
  - Myocarditis [Unknown]
  - Mental disorder [Unknown]
